FAERS Safety Report 6477077-5 (Version None)
Quarter: 2009Q4

REPORT INFORMATION
  Report Type: 
  Country: None (occurrence: None)
  Receive Date: 20091204
  Receipt Date: 20091204
  Transmission Date: 20100525
  Serious: Yes (Hospitalization)
  Sender: FDA-Public Use
  Company Number: None

PATIENT
  Sex: Male
  Weight: 109 kg

DRUGS (2)
  1. TARCEVA [Suspect]
     Indication: RENAL CELL CARCINOMA
     Dosage: 150MG (1 PILL) Q1D ORAL
     Route: 048
     Dates: start: 20070416, end: 20090817
  2. SUTENT [Suspect]
     Dosage: 50MG (1 PILL) Q1D ORAL
     Route: 048
     Dates: start: 20070416, end: 20090817

REACTIONS (17)
  - BALANCE DISORDER [None]
  - BLOOD GLUCOSE INCREASED [None]
  - BRAIN MASS [None]
  - CONVULSION [None]
  - FALL [None]
  - FATIGUE [None]
  - HAEMORRHAGE [None]
  - HEMIPARESIS [None]
  - IMPAIRED DRIVING ABILITY [None]
  - INJURY [None]
  - METASTASES TO CENTRAL NERVOUS SYSTEM [None]
  - OEDEMA PERIPHERAL [None]
  - SWELLING FACE [None]
  - SWOLLEN TONGUE [None]
  - TONGUE BITING [None]
  - VASOGENIC CEREBRAL OEDEMA [None]
  - WEIGHT INCREASED [None]
